FAERS Safety Report 21834769 (Version 3)
Quarter: 2025Q2

REPORT INFORMATION
  Report Type: Spontaneous
  Country: US (occurrence: US)
  Receive Date: 20230108
  Receipt Date: 20250409
  Transmission Date: 20250716
  Serious: No
  Sender: ROCHE
  Company Number: US-ROCHE-2971380

PATIENT
  Age: 55 Year
  Sex: Male
  Weight: 84.0 kg

DRUGS (5)
  1. HEMLIBRA [Suspect]
     Active Substance: EMICIZUMAB-KXWH
     Indication: Factor VIII deficiency
     Dosage: STRENGTH: 150MG/ML
     Route: 058
     Dates: start: 20210801
  2. HEMLIBRA [Suspect]
     Active Substance: EMICIZUMAB-KXWH
     Indication: Haemophilia
     Route: 058
     Dates: start: 20210824
  3. HEMLIBRA [Suspect]
     Active Substance: EMICIZUMAB-KXWH
     Route: 058
     Dates: start: 201702
  4. HEMLIBRA [Suspect]
     Active Substance: EMICIZUMAB-KXWH
     Route: 058
     Dates: start: 201702
  5. HEMLIBRA [Suspect]
     Active Substance: EMICIZUMAB-KXWH
     Dosage: STRENGTH: 105 MG/ 0.7 ML
     Route: 058
     Dates: start: 2021

REACTIONS (6)
  - Haemorrhage [Recovered/Resolved]
  - Haemorrhage [Recovered/Resolved]
  - Haemorrhage [Unknown]
  - Ear haemorrhage [Unknown]
  - Arthritis [Not Recovered/Not Resolved]
  - Musculoskeletal stiffness [Not Recovered/Not Resolved]

NARRATIVE: CASE EVENT DATE: 20250318
